FAERS Safety Report 5812454-4 (Version None)
Quarter: 2008Q3

REPORT INFORMATION
  Report Type: 
  Country: None (occurrence: None)
  Receive Date: 20080717
  Receipt Date: 20080715
  Transmission Date: 20090109
  Serious: Yes (Other)
  Sender: FDA-Public Use
  Company Number: ES-RANBAXY-2008RR-16085

PATIENT

DRUGS (4)
  1. ENALAPRIL COMBINOPHARM 20MG COMPRIMIDOS EFG [Suspect]
     Indication: HYPERTENSION
     Dosage: 20 MG, QD
  2. FENTANYL [Suspect]
     Indication: ANAESTHESIA
  3. MEPIVACAINE HCL [Suspect]
     Indication: ANAESTHESIA
  4. MIDAZOLAM HCL [Suspect]
     Indication: ANAESTHESIA

REACTIONS (3)
  - ANOXIC ENCEPHALOPATHY [None]
  - DRUG INTERACTION [None]
  - HYPOTENSION [None]
